FAERS Safety Report 23827486 (Version 3)
Quarter: 2025Q4

REPORT INFORMATION
  Report Type: Spontaneous
  Country: US (occurrence: US)
  Receive Date: 20240507
  Receipt Date: 20251107
  Transmission Date: 20260118
  Serious: No
  Sender: VERTEX
  Company Number: US-VERTEX PHARMACEUTICALS-2024-007668

PATIENT

DRUGS (1)
  1. TRIKAFTA [Suspect]
     Active Substance: ELEXACAFTOR\IVACAFTOR\TEZACAFTOR
     Indication: Cystic fibrosis
     Dosage: UNKNOWN DOSAGE REGIMEN
     Route: 048

REACTIONS (6)
  - Mental disorder [Recovering/Resolving]
  - Decreased interest [Recovering/Resolving]
  - Hypersomnia [Recovering/Resolving]
  - Sinus congestion [Recovering/Resolving]
  - Liver disorder [Recovered/Resolved]
  - Quality of life decreased [Unknown]
